FAERS Safety Report 16145863 (Version 1)
Quarter: 2019Q2

REPORT INFORMATION
  Report Type: Spontaneous
  Country: US (occurrence: US)
  Receive Date: 20190227
  Receipt Date: 20190227
  Transmission Date: 20190711
  Serious: No
  Sender: FDA-Public Use
  Company Number: None

PATIENT
  Age: 60 Year
  Sex: Female
  Weight: 122.47 kg

DRUGS (1)
  1. BENLYSTA [Suspect]
     Active Substance: BELIMUMAB
     Indication: SYSTEMIC LUPUS ERYTHEMATOSUS
     Dosage: INFUSE 1227MG INTRAVENOUSLY OVER 1 HR AT WEEKS 0, 2 AND 4 AS DIRECTED
     Route: 042
     Dates: start: 201811

REACTIONS (3)
  - Headache [None]
  - Nausea [None]
  - Diarrhoea [None]
